FAERS Safety Report 14940469 (Version 4)
Quarter: 2018Q3

REPORT INFORMATION
  Report Type: Spontaneous
  Country: JP (occurrence: JP)
  Receive Date: 20180525
  Receipt Date: 20180815
  Transmission Date: 20181010
  Serious: Yes (Hospitalization)
  Sender: FDA-Public Use
  Company Number: JP-UCBSA-2018023268

PATIENT
  Age: 33 Year
  Sex: Female
  Weight: 59 kg

DRUGS (6)
  1. VIMPAT [Suspect]
     Active Substance: LACOSAMIDE
     Indication: EPILEPSY
     Dosage: 200 MG, 2X/DAY (BID)
     Route: 048
     Dates: start: 20171215
  2. MAGMITT [Concomitant]
     Active Substance: MAGNESIUM OXIDE
     Indication: CONSTIPATION
     Route: 048
  3. E KEPPRA [Concomitant]
     Active Substance: LEVETIRACETAM
     Indication: EPILEPSY
  4. ONON [Suspect]
     Active Substance: PRANLUKAST
     Indication: EPILEPSY
     Dosage: 450 MG, ONCE DAILY (QD)
     Route: 048
     Dates: start: 20180522
  5. GAMMA?GLOBULIN [Suspect]
     Active Substance: IMMUNE GLOBULIN NOS
     Indication: TRANSFUSION
     Dosage: UNK
     Route: 042
     Dates: start: 20180418, end: 20180422
  6. FYCOMPA [Concomitant]
     Active Substance: PERAMPANEL
     Indication: EPILEPSY
     Route: 048

REACTIONS (1)
  - Granulocytopenia [Recovered/Resolved]

NARRATIVE: CASE EVENT DATE: 20180423
